FAERS Safety Report 9820473 (Version 3)
Quarter: 2014Q1

REPORT INFORMATION
  Report Type: Spontaneous
  Country: GB (occurrence: None)
  Receive Date: 20140114
  Receipt Date: 20140203
  Transmission Date: 20141002
  Serious: Yes (Hospitalization, Other)
  Sender: FDA-Public Use
  Company Number: KAD201401-000006

PATIENT
  Age: 42 Year
  Sex: Female

DRUGS (6)
  1. RIBAVIRIN [Suspect]
     Indication: CHRONIC HEPATITIS C
     Route: 048
     Dates: start: 20131002, end: 20131124
  2. PEGINTERFERON ALFA-2A (PEGINTERFERON ALFA-2A) [Suspect]
     Indication: CHRONIC HEPATITIS C
     Route: 058
     Dates: start: 20131002
  3. TELAPREVIR (TELAPREVIR) [Suspect]
     Indication: CHRONIC HEPATITIS C
     Route: 048
     Dates: start: 20131002
  4. OILATUM (LIQUID PETROLATUM, LIGHT LIQUID PARAFFIN, WHITE SOFT PARAFFIN) [Concomitant]
  5. PARACETAMOL (ACETAMINOPHEN) [Concomitant]
  6. COLLOIDAL OATMEAL (AVENA SATIVA) [Concomitant]

REACTIONS (4)
  - Urinary tract infection [None]
  - Anaemia [None]
  - Mitral valve incompetence [None]
  - Tricuspid valve incompetence [None]
